FAERS Safety Report 15962353 (Version 10)
Quarter: 2020Q4

REPORT INFORMATION
  Report Type: Spontaneous
  Country: US (occurrence: US)
  Receive Date: 20190214
  Receipt Date: 20201005
  Transmission Date: 20210113
  Serious: No
  Sender: FDA-Public Use
  Company Number: US-PFIZER INC-2019065378

PATIENT
  Age: 73 Year
  Sex: Female
  Weight: 53 kg

DRUGS (12)
  1. CEPHALEXINE [Concomitant]
     Active Substance: CEPHALEXIN
     Dosage: UNK
  2. LYRICA [Suspect]
     Active Substance: PREGABALIN
     Indication: SEIZURE
  3. PROMETHAZINE [Concomitant]
     Active Substance: PROMETHAZINE HYDROCHLORIDE
     Dosage: UNK
  4. PROTONIX [Concomitant]
     Active Substance: PANTOPRAZOLE SODIUM
     Dosage: 40 MG, 3X/DAY
  5. LYRICA [Suspect]
     Active Substance: PREGABALIN
     Indication: TRIGEMINAL NEURALGIA
     Dosage: 100 MG, 3X/DAY
  6. LYRICA [Suspect]
     Active Substance: PREGABALIN
     Indication: PAIN
  7. LYRICA [Suspect]
     Active Substance: PREGABALIN
     Indication: HEADACHE
  8. PROPOXYPHENE. [Concomitant]
     Active Substance: PROPOXYPHENE
     Dosage: 100 MG
  9. DICLOFENAC [Concomitant]
     Active Substance: DICLOFENAC
     Dosage: UNK
  10. CLARITINE [Concomitant]
     Active Substance: LORATADINE
     Dosage: UNK
  11. FLORIZINE [Concomitant]
     Dosage: UNK
  12. LYRICA [Suspect]
     Active Substance: PREGABALIN
     Indication: MENINGIOMA

REACTIONS (5)
  - Exertional headache [Unknown]
  - Feeling abnormal [Unknown]
  - Head discomfort [Unknown]
  - Aphonia [Unknown]
  - Dysgraphia [Unknown]
